FAERS Safety Report 26176898 (Version 1)
Quarter: 2025Q4

REPORT INFORMATION
  Report Type: Report from Study
  Country: US (occurrence: US)
  Receive Date: 20251218
  Receipt Date: 20251218
  Transmission Date: 20260118
  Serious: Yes (Hospitalization)
  Sender: ABBVIE
  Company Number: US-ABBVIE-6592958

PATIENT
  Age: 80 Year
  Sex: Male

DRUGS (1)
  1. VENCLEXTA [Suspect]
     Active Substance: VENETOCLAX
     Indication: Waldenstrom^s macroglobulinaemia
     Dosage: VERIFIED DOSE AS 1 THE FIRST WEEK, 2 THE SECOND WEEK?ADVISED TO TAKE AS TWO FIRST WEEK, FOUR THE ...
     Route: 048
     Dates: start: 202511

REACTIONS (6)
  - Pleural effusion [Unknown]
  - Coronary artery disease [Unknown]
  - Asthenia [Unknown]
  - Heart rate increased [Unknown]
  - Gait inability [Unknown]
  - Off label use [Unknown]

NARRATIVE: CASE EVENT DATE: 20250101
